FAERS Safety Report 21126865 (Version 1)
Quarter: 2022Q3

REPORT INFORMATION
  Report Type: Spontaneous
  Country: FR (occurrence: FR)
  Receive Date: 20220725
  Receipt Date: 20220725
  Transmission Date: 20221027
  Serious: Yes (Life-Threatening, Hospitalization)
  Sender: FDA-Public Use
  Company Number: None

PATIENT
  Age: 0 Day
  Sex: Male
  Weight: 1.65 kg

DRUGS (1)
  1. LIDOCAINE [Suspect]
     Active Substance: LIDOCAINE
     Indication: Pudendal block
     Dosage: 100MG X2
     Dates: start: 20220314, end: 20220314

REACTIONS (3)
  - Local anaesthetic systemic toxicity [Recovered/Resolved]
  - Coma [Recovered/Resolved]
  - Cardiogenic shock [Recovered/Resolved]

NARRATIVE: CASE EVENT DATE: 20220314
